FAERS Safety Report 14741997 (Version 1)
Quarter: 2018Q2

REPORT INFORMATION
  Report Type: Spontaneous
  Country: US (occurrence: US)
  Receive Date: 20180410
  Receipt Date: 20180410
  Transmission Date: 20180711
  Serious: No
  Sender: FDA-Public Use
  Company Number: US-BAUSCH-BL-2017-019860

PATIENT
  Age: 71 Year
  Sex: Male
  Weight: 90.8 kg

DRUGS (1)
  1. FLUNISOLIDE NASAL SOLUTION USP 0.025% [Suspect]
     Active Substance: FLUNISOLIDE
     Indication: CHRONIC SINUSITIS
     Dosage: 2 PUFFS IN EACH NOSTRIL TWICE DAILY
     Dates: start: 201703

REACTIONS (3)
  - Application site pain [Not Recovered/Not Resolved]
  - Nasal discomfort [Not Recovered/Not Resolved]
  - Product container issue [Unknown]
